FAERS Safety Report 5158686-2 (Version None)
Quarter: 2006Q4

REPORT INFORMATION
  Report Type: 
  Country: None (occurrence: None)
  Receive Date: 20061128
  Receipt Date: 20061117
  Transmission Date: 20070319
  Serious: Yes (Other)
  Sender: FDA-Public Use
  Company Number: US-ELI_LILLY_AND_COMPANY-US200611003716

PATIENT
  Age: 63 Year
  Sex: Male

DRUGS (2)
  1. HUMALOG [Suspect]
     Indication: DIABETES MELLITUS
     Dosage: UNK, UNK
     Dates: start: 20050401
  2. LANTUS [Concomitant]
     Indication: DIABETES MELLITUS

REACTIONS (5)
  - EYE DISORDER [None]
  - EYE INFECTION [None]
  - HERPES OPHTHALMIC [None]
  - INTRAOCULAR PRESSURE INCREASED [None]
  - RENAL FAILURE [None]
